FAERS Safety Report 9808495 (Version 1)
Quarter: 2014Q1

REPORT INFORMATION
  Report Type: Spontaneous
  Country: US (occurrence: US)
  Receive Date: 20140110
  Receipt Date: 20140110
  Transmission Date: 20141002
  Serious: Yes (Hospitalization)
  Sender: FDA-Public Use
  Company Number: US-GILEAD-2010-0030795

PATIENT
  Age: 39 Year
  Sex: Male
  Weight: 63.5 kg

DRUGS (9)
  1. VIREAD [Suspect]
     Indication: HIV INFECTION
     Route: 048
     Dates: start: 20100323, end: 20100713
  2. PREZISTA /N [Concomitant]
     Indication: HIV INFECTION
  3. EPZICOM [Concomitant]
     Indication: HIV INFECTION
  4. BACTRIM DS [Concomitant]
  5. ZITHROMAX [Concomitant]
  6. ITRACONAZOLE [Concomitant]
  7. ANDROGEL [Concomitant]
  8. VICODIN [Concomitant]
  9. FERROUS SULFATE [Concomitant]

REACTIONS (2)
  - Fanconi syndrome acquired [Unknown]
  - Blood creatinine increased [Unknown]
